FAERS Safety Report 20247353 (Version 1)
Quarter: 2021Q4

REPORT INFORMATION
  Report Type: Spontaneous
  Country: US (occurrence: US)
  Receive Date: 20211229
  Receipt Date: 20211229
  Transmission Date: 20220303
  Serious: No
  Sender: FDA-Public Use
  Company Number: US-NOVARTISTESTPH-NVSC2021US298867

PATIENT
  Sex: Female

DRUGS (1)
  1. PROMACTA [Suspect]
     Active Substance: ELTROMBOPAG OLAMINE
     Indication: Evans syndrome
     Dosage: 50 MG, QD
     Route: 048
     Dates: start: 202111

REACTIONS (2)
  - Enuresis [Unknown]
  - Product use in unapproved indication [Unknown]
